FAERS Safety Report 17970418 (Version 2)
Quarter: 2020Q3

REPORT INFORMATION
  Report Type: Report from Study
  Country: IT (occurrence: IT)
  Receive Date: 20200701
  Receipt Date: 20200820
  Transmission Date: 20201103
  Serious: Yes (Death, Disabling, Other)
  Sender: FDA-Public Use
  Company Number: IT-JNJFOC-20190512256

PATIENT
  Sex: Male

DRUGS (2)
  1. PREDNISOLONE. [Concomitant]
     Active Substance: PREDNISOLONE
     Indication: PROSTATE CANCER METASTATIC
     Route: 065
  2. ABIRATERONE ACETATE. [Suspect]
     Active Substance: ABIRATERONE ACETATE
     Indication: PROSTATE CANCER METASTATIC
     Route: 048

REACTIONS (40)
  - Cardiac disorder [Fatal]
  - Mediastinal disorder [Fatal]
  - Connective tissue disorder [Fatal]
  - Product quality issue [Not Recovered/Not Resolved]
  - Lymphatic disorder [Fatal]
  - Hepatobiliary disease [Fatal]
  - Breast disorder [Not Recovered/Not Resolved]
  - Eye disorder [Not Recovered/Not Resolved]
  - Nausea [Unknown]
  - Angiopathy [Fatal]
  - Respiratory disorder [Fatal]
  - Renal disorder [Fatal]
  - Abdominal pain [Unknown]
  - Infestation [Fatal]
  - Neoplasm [Fatal]
  - Malnutrition [Fatal]
  - Gastrointestinal disorder [Fatal]
  - Urinary tract disorder [Fatal]
  - Inner ear disorder [Not Recovered/Not Resolved]
  - Mental disorder [Fatal]
  - Metabolic disorder [Fatal]
  - Laboratory test abnormal [Fatal]
  - Reproductive tract disorder [Not Recovered/Not Resolved]
  - Disability [Unknown]
  - Headache [Unknown]
  - Blood disorder [Fatal]
  - Nervous system disorder [Fatal]
  - Adverse event [Fatal]
  - Atrial fibrillation [Unknown]
  - Constipation [Unknown]
  - Endocrine disorder [Fatal]
  - Surgery [Fatal]
  - Diarrhoea [Unknown]
  - Infection [Fatal]
  - Immune system disorder [Fatal]
  - Skin disorder [Fatal]
  - Musculoskeletal disorder [Fatal]
  - Injury [Fatal]
  - Social problem [Not Recovered/Not Resolved]
  - Pregnancy of partner [Not Recovered/Not Resolved]
